FAERS Safety Report 10185995 (Version 1)
Quarter: 2014Q2

REPORT INFORMATION
  Report Type: Spontaneous
  Country: US (occurrence: FR)
  Receive Date: 20140521
  Receipt Date: 20140521
  Transmission Date: 20141212
  Serious: Yes (Death, Disabling, Other)
  Sender: FDA-Public Use
  Company Number: 2014SP002700

PATIENT
  Age: 54 Year
  Sex: Male

DRUGS (28)
  1. METHOTREXATE [Suspect]
     Indication: PRODUCT USED FOR UNKNOWN INDICATION
     Route: 037
     Dates: start: 20130317, end: 20140114
  2. CYTARABINE [Suspect]
     Indication: PRODUCT USED FOR UNKNOWN INDICATION
     Route: 037
     Dates: start: 20131017
  3. CYTARABINE [Suspect]
     Indication: PRODUCT USED FOR UNKNOWN INDICATION
     Route: 037
     Dates: start: 20140114
  4. CYTARABINE [Suspect]
     Indication: PRODUCT USED FOR UNKNOWN INDICATION
     Route: 042
     Dates: start: 20131018, end: 20131018
  5. CYTARABINE [Suspect]
     Indication: PRODUCT USED FOR UNKNOWN INDICATION
     Route: 042
     Dates: start: 20131113, end: 20131113
  6. CYTARABINE [Suspect]
     Indication: PRODUCT USED FOR UNKNOWN INDICATION
     Route: 042
     Dates: start: 20131203, end: 20131203
  7. CYTARABINE [Suspect]
     Indication: PRODUCT USED FOR UNKNOWN INDICATION
     Route: 042
     Dates: start: 20140114, end: 20140114
  8. CISPLATIN [Suspect]
     Indication: PRODUCT USED FOR UNKNOWN INDICATION
     Route: 042
     Dates: start: 20131018, end: 20131018
  9. CISPLATIN [Suspect]
     Indication: PRODUCT USED FOR UNKNOWN INDICATION
     Route: 042
     Dates: start: 20131113, end: 20131113
  10. CISPLATIN [Suspect]
     Indication: PRODUCT USED FOR UNKNOWN INDICATION
     Route: 042
     Dates: start: 20131203, end: 20131203
  11. CISPLATIN [Suspect]
     Indication: PRODUCT USED FOR UNKNOWN INDICATION
     Route: 042
     Dates: start: 20140114, end: 20140114
  12. DEXAMETHASONE [Suspect]
     Indication: PRODUCT USED FOR UNKNOWN INDICATION
     Dates: start: 20131018
  13. DEXAMETHASONE [Suspect]
     Indication: PRODUCT USED FOR UNKNOWN INDICATION
     Dates: start: 20131113
  14. DEXAMETHASONE [Suspect]
     Indication: PRODUCT USED FOR UNKNOWN INDICATION
     Dates: start: 20131203
  15. DEXAMETHASONE [Suspect]
     Indication: PRODUCT USED FOR UNKNOWN INDICATION
     Dates: start: 20140114
  16. RITUXIMAB [Suspect]
     Indication: PRODUCT USED FOR UNKNOWN INDICATION
     Route: 042
     Dates: start: 20131018, end: 20131018
  17. RITUXIMAB [Suspect]
     Indication: PRODUCT USED FOR UNKNOWN INDICATION
     Route: 042
     Dates: start: 20131113, end: 20131113
  18. RITUXIMAB [Suspect]
     Indication: PRODUCT USED FOR UNKNOWN INDICATION
     Route: 042
     Dates: start: 20131203, end: 20131203
  19. RITUXIMAB [Suspect]
     Indication: PRODUCT USED FOR UNKNOWN INDICATION
     Route: 042
     Dates: start: 20140114, end: 20140114
  20. DESMOPRESSIN ACETATE [Concomitant]
  21. HYDROCORTISONE [Concomitant]
     Route: 037
     Dates: start: 20131017
  22. HYDROCORTISONE [Concomitant]
     Route: 037
     Dates: start: 20131023
  23. HYDROCORTISONE [Concomitant]
     Route: 037
     Dates: start: 20131113
  24. HYDROCORTISONE [Concomitant]
     Route: 037
     Dates: start: 20140114
  25. LEVETIRACETAM MYLAN [Concomitant]
  26. LEVOTHYROXINE SODIUM [Concomitant]
  27. PANTOPRAZOLE SODIUM SESQUIHYDRATE [Concomitant]
  28. ENOXAPARIN SODIUM [Concomitant]

REACTIONS (3)
  - Zygomycosis [Fatal]
  - Deafness bilateral [Unknown]
  - Tinnitus [Unknown]
